FAERS Safety Report 7241910-X (Version None)
Quarter: 2011Q1

REPORT INFORMATION
  Report Type: 
  Country: None (occurrence: None)
  Receive Date: 20110124
  Receipt Date: 20110113
  Transmission Date: 20110831
  Serious: Yes (Hospitalization)
  Sender: FDA-Public Use
  Company Number: PL-JNJFOC-20110104422

PATIENT
  Sex: Male
  Weight: 80 kg

DRUGS (2)
  1. STELARA [Suspect]
     Indication: PSORIASIS
     Route: 058
  2. PRAZOLE [Concomitant]
     Indication: PEPTIC ULCER
     Route: 048

REACTIONS (3)
  - COUGH [None]
  - PYREXIA [None]
  - CHEST PAIN [None]
